FAERS Safety Report 22142932 (Version 1)
Quarter: 2023Q1

REPORT INFORMATION
  Report Type: Spontaneous
  Country: US (occurrence: US)
  Receive Date: 20230327
  Receipt Date: 20230327
  Transmission Date: 20230418
  Serious: No
  Sender: FDA-Public Use
  Company Number: US-PFIZER INC-202300127791

PATIENT
  Age: 51 Year
  Sex: Female
  Weight: 107.05 kg

DRUGS (2)
  1. XELJANZ XR [Suspect]
     Active Substance: TOFACITINIB CITRATE
     Indication: Addison^s disease
     Dosage: 11 MG
  2. HYDROCORTISONE [Suspect]
     Active Substance: HYDROCORTISONE
     Indication: Addison^s disease
     Dosage: 5 MG
     Dates: start: 20230207

REACTIONS (2)
  - Off label use [Unknown]
  - Joint swelling [Unknown]
